FAERS Safety Report 8027526-6 (Version None)
Quarter: 2012Q1

REPORT INFORMATION
  Report Type: 
  Country: None (occurrence: None)
  Receive Date: 20120106
  Receipt Date: 20120103
  Transmission Date: 20120608
  Serious: Yes (Other)
  Sender: FDA-Public Use
  Company Number: US-JNJFOC-20120100761

PATIENT
  Sex: Female
  Weight: 90.72 kg

DRUGS (3)
  1. REMICADE [Suspect]
     Indication: ANKYLOSING SPONDYLITIS
     Route: 042
     Dates: start: 20020101, end: 20090101
  2. REMICADE [Suspect]
     Indication: CROHN'S DISEASE
     Route: 042
     Dates: start: 20020101, end: 20090101
  3. UNSPECIFED MEDICATIONS [Concomitant]
     Dosage: 17 UNSPECIFIED MEDICATIONS
     Route: 065

REACTIONS (7)
  - DIABETES MELLITUS [None]
  - JOINT SWELLING [None]
  - CONDITION AGGRAVATED [None]
  - BLOOD PRESSURE INCREASED [None]
  - SERUM SICKNESS [None]
  - DRUG INEFFECTIVE [None]
  - ARTHRALGIA [None]
